FAERS Safety Report 11009253 (Version 3)
Quarter: 2015Q2

REPORT INFORMATION
  Report Type: Spontaneous
  Country: US (occurrence: US)
  Receive Date: 20150410
  Receipt Date: 20150501
  Transmission Date: 20150821
  Serious: No
  Sender: FDA-Public Use
  Company Number: US-PFIZER INC-2015117243

PATIENT
  Age: 59 Year
  Sex: Male
  Weight: 104.31 kg

DRUGS (1)
  1. SUTENT [Suspect]
     Active Substance: SUNITINIB MALATE
     Indication: RENAL CANCER
     Dosage: 50 MG, CYCLIC (ONE CAPSULE DAILY FOR TWO WEEKS THEN OFF FOR ONE WEEK)
     Route: 048
     Dates: start: 201410, end: 20150303

REACTIONS (4)
  - Liver disorder [Unknown]
  - Yellow skin [Unknown]
  - Disease progression [Not Recovered/Not Resolved]
  - Renal cell carcinoma [Not Recovered/Not Resolved]

NARRATIVE: CASE EVENT DATE: 20150303
